FAERS Safety Report 8615343-5 (Version None)
Quarter: 2012Q3

REPORT INFORMATION
  Report Type: 
  Country: None (occurrence: None)
  Receive Date: 20120823
  Receipt Date: 20120817
  Transmission Date: 20120928
  Serious: Yes (Death, Hospitalization)
  Sender: FDA-Public Use
  Company Number: PT-SHIRE-SPV1-2012-00186

PATIENT
  Sex: Male

DRUGS (2)
  1. CLEMASTINE [Concomitant]
     Indication: PREMEDICATION
     Dosage: 0.7 MG, 1X/WEEK
     Route: 042
     Dates: start: 20070601
  2. IDURSULFASE [Suspect]
     Indication: MUCOPOLYSACCHARIDOSIS II
     Dosage: 0.53 MG/KG, 1X/WEEK
     Route: 041
     Dates: start: 20070509

REACTIONS (1)
  - RESPIRATORY FAILURE [None]
